FAERS Safety Report 18605125 (Version 3)
Quarter: 2021Q1

REPORT INFORMATION
  Report Type: Spontaneous
  Country: FI (occurrence: FI)
  Receive Date: 20201211
  Receipt Date: 20210122
  Transmission Date: 20210419
  Serious: Yes (Hospitalization)
  Sender: FDA-Public Use
  Company Number: FI-NOVOPROD-772015

PATIENT
  Age: 23 Year
  Sex: Male

DRUGS (3)
  1. NOVORAPID [Suspect]
     Active Substance: INSULIN ASPART
     Dosage: DOSE INCREASED UPTO 170 IU
     Route: 058
     Dates: start: 202011
  2. NOVORAPID [Suspect]
     Active Substance: INSULIN ASPART
     Dosage: TREATED WITH ANOTHER BATCH
     Route: 058
  3. NOVORAPID [Suspect]
     Active Substance: INSULIN ASPART
     Indication: TYPE 1 DIABETES MELLITUS
     Dosage: 70 IU, TOTAL DAILY DOSE
     Route: 058
     Dates: start: 20190109

REACTIONS (3)
  - Blood glucose increased [Recovered/Resolved]
  - Increased insulin requirement [Unknown]
  - Product leakage [Unknown]

NARRATIVE: CASE EVENT DATE: 202011
